FAERS Safety Report 9203627 (Version 1)
Quarter: 2013Q1

REPORT INFORMATION
  Report Type: Spontaneous
  Country: CA (occurrence: None)
  Receive Date: 20130329
  Receipt Date: 20130329
  Transmission Date: 20140127
  Serious: Yes (Other)
  Sender: FDA-Public Use
  Company Number: 2012MZ000414

PATIENT
  Sex: Female

DRUGS (11)
  1. XEOMIN [Suspect]
     Indication: MUSCLE SPASTICITY
     Dates: start: 20121213, end: 20121213
  2. INFLUENZA VACCINE (INFLUENZA VACCINE) (INFLUENZA VACCINE) [Suspect]
     Dates: end: 20121218
  3. CEFTRIAXONE SODIUM [Suspect]
     Indication: URINARY TRACT INFECTION
     Dates: start: 20121221
  4. PARACETAMOL [Suspect]
  5. BISACODYL [Suspect]
  6. RANITIDINE [Concomitant]
  7. DOCUSATE SODIUM [Concomitant]
  8. CENTRUM SELECT [Concomitant]
  9. LACTULOSE [Concomitant]
  10. HYPROMELLOSE [Concomitant]
  11. GOLYTELY [Concomitant]

REACTIONS (6)
  - Rash generalised [None]
  - Urinary tract infection [None]
  - Dysphagia [None]
  - Pyrexia [None]
  - Palpitations [None]
  - Blood pressure increased [None]
